FAERS Safety Report 24041980 (Version 1)
Quarter: 2024Q3

REPORT INFORMATION
  Report Type: Spontaneous
  Country: IT (occurrence: IT)
  Receive Date: 20240702
  Receipt Date: 20240702
  Transmission Date: 20241017
  Serious: Yes (Life-Threatening, Hospitalization, Other)
  Sender: PIERREL
  Company Number: IT-PIERREL S.P.A.-2024PIR00031

PATIENT
  Age: 89 Year
  Sex: Female

DRUGS (2)
  1. ARTICAINE\EPINEPHRINE [Suspect]
     Active Substance: ARTICAINE\EPINEPHRINE
     Indication: Infiltration anaesthesia
  2. UNSPECIFIED INGREDIENT [Concomitant]
     Active Substance: UNSPECIFIED INGREDIENT

REACTIONS (12)
  - Syncope [Recovered/Resolved]
  - Hypotension [Recovered/Resolved]
  - Muscular weakness [Recovered/Resolved]
  - Seizure [Recovered/Resolved]
  - Urinary incontinence [Recovered/Resolved]
  - Local anaesthetic systemic toxicity [Recovered/Resolved]
  - Electrocardiogram QRS complex prolonged [Recovered/Resolved]
  - Oxygen saturation decreased [Recovered/Resolved]
  - Cyanosis [Recovered/Resolved]
  - Respiratory distress [Recovered/Resolved]
  - Anisocoria [Recovered/Resolved]
  - Amnesia [Recovered/Resolved]
